FAERS Safety Report 4501834-5 (Version None)
Quarter: 2004Q4

REPORT INFORMATION
  Report Type: 
  Country: None (occurrence: None)
  Receive Date: 20041115
  Receipt Date: 20041115
  Transmission Date: 20050328
  Serious: Yes (Life-Threatening, Hospitalization)
  Sender: FDA-Public Use
  Company Number: None

PATIENT
  Age: 66 Year
  Sex: Male
  Weight: 60.3 kg

DRUGS (16)
  1. LISINOPRIL [Suspect]
  2. ACETAMINOPHEN AND HYDROCODONE BITARTRATE [Concomitant]
  3. OFLOXACIN OPHTHALMIC SOLN, OPH [Concomitant]
  4. GATIFLOXACIN [Concomitant]
  5. GABAPENTIN [Concomitant]
  6. ROSIGLITAZONE MALEATE [Concomitant]
  7. REGULAR INSULIN [Concomitant]
  8. NPH INSULIN [Concomitant]
  9. INSULIN HUMAN REGULAR [Concomitant]
  10. OMEPRAZOLE [Concomitant]
  11. AMIODARONE [Concomitant]
  12. AMLODIPINE [Concomitant]
  13. MULTIVITAMINS W/ MINERALS [Concomitant]
  14. WARFARIN SODIUM [Concomitant]
  15. LEVOTHYROXINE SODIUM [Concomitant]
  16. DIGOXIN [Concomitant]

REACTIONS (4)
  - ASTHENIA [None]
  - DIZZINESS [None]
  - HYPERKALAEMIA [None]
  - RENAL FAILURE ACUTE [None]
